FAERS Safety Report 4345178-3 (Version None)
Quarter: 2004Q2

REPORT INFORMATION
  Report Type: 
  Country: None (occurrence: None)
  Receive Date: 20040420
  Receipt Date: 20040413
  Transmission Date: 20050107
  Serious: Yes (Other)
  Sender: FDA-Public Use
  Company Number: BET-454-AE

PATIENT
  Age: 54 Year
  Sex: Female
  Weight: 58.0604 kg

DRUGS (3)
  1. BETIMOL [Suspect]
     Indication: GLAUCOMA
     Dosage: ONE DROP EACH EYE TWICE DAILY, TOPICAL
     Route: 061
  2. LISINOPRIL [Concomitant]
  3. INSULIN [Concomitant]

REACTIONS (3)
  - NAUSEA [None]
  - RASH [None]
  - SWOLLEN TONGUE [None]
